FAERS Safety Report 25463883 (Version 2)
Quarter: 2025Q3

REPORT INFORMATION
  Report Type: Spontaneous
  Country: EU (occurrence: EU)
  Receive Date: 20250621
  Receipt Date: 20250801
  Transmission Date: 20251020
  Serious: Yes (Other)
  Sender: AUROBINDO
  Company Number: EU-SUN PHARMACEUTICAL INDUSTRIES LTD-2025RR-509954

PATIENT
  Age: 71 Year
  Sex: Male

DRUGS (3)
  1. IMATINIB [Suspect]
     Active Substance: IMATINIB
     Indication: Chronic myeloid leukaemia
     Dosage: 400 MILLIGRAM, ONCE A DAY (400 MILLIGRAM, DAILY)
     Route: 065
  2. DASATINIB [Suspect]
     Active Substance: DASATINIB
     Indication: Chronic myeloid leukaemia
     Dosage: 100 MILLIGRAM, ONCE A DAY (100 MILLIGRAM, DAILY)
     Route: 065
  3. DASATINIB [Suspect]
     Active Substance: DASATINIB
     Route: 065

REACTIONS (11)
  - Gastrointestinal haemorrhage [Unknown]
  - Drug intolerance [Unknown]
  - Faeces discoloured [Not Recovered/Not Resolved]
  - Chills [Unknown]
  - Pyrexia [Unknown]
  - Decreased appetite [Unknown]
  - Eyelid oedema [Unknown]
  - Asthenia [Unknown]
  - Dyspnoea [Unknown]
  - Abdominal pain [Unknown]
  - Exercise tolerance decreased [Unknown]
